FAERS Safety Report 6479619-2 (Version None)
Quarter: 2009Q4

REPORT INFORMATION
  Report Type: 
  Country: None (occurrence: None)
  Receive Date: 20091208
  Receipt Date: 20091126
  Transmission Date: 20100525
  Serious: Yes (Hospitalization)
  Sender: FDA-Public Use
  Company Number: MX-CELGENEUS-107-20785-09112280

PATIENT
  Age: 52 Year
  Sex: Male

DRUGS (4)
  1. THALOMID [Suspect]
     Indication: LEPROSY
     Route: 048
  2. DAPSONE [Suspect]
     Indication: LEPROSY
     Route: 065
  3. RIFAMPIN [Suspect]
     Indication: LEPROSY
     Route: 065
  4. CLOFAZIMINE [Suspect]
     Indication: LEPROSY
     Route: 065

REACTIONS (1)
  - PULMONARY TUBERCULOSIS [None]
